FAERS Safety Report 19615420 (Version 3)
Quarter: 2022Q3

REPORT INFORMATION
  Report Type: Spontaneous
  Country: US (occurrence: US)
  Receive Date: 20210727
  Receipt Date: 20220906
  Transmission Date: 20221026
  Serious: Yes (Other)
  Sender: FDA-Public Use
  Company Number: US-SA-2021SA246967

PATIENT
  Age: 66 Year
  Sex: Male

DRUGS (1)
  1. ZANTAC [Suspect]
     Active Substance: RANITIDINE HYDROCHLORIDE
     Dosage: UNK, QD
     Route: 048
     Dates: start: 201212, end: 201801

REACTIONS (7)
  - Prostate cancer stage IV [Not Recovered/Not Resolved]
  - Disease progression [Not Recovered/Not Resolved]
  - Disability [Unknown]
  - Pain [Unknown]
  - Anhedonia [Unknown]
  - Anxiety [Unknown]
  - Deformity [Unknown]

NARRATIVE: CASE EVENT DATE: 20171101
